FAERS Safety Report 14697237 (Version 1)
Quarter: 2018Q1

REPORT INFORMATION
  Report Type: Spontaneous
  Country: US (occurrence: US)
  Receive Date: 20180330
  Receipt Date: 20180330
  Transmission Date: 20180509
  Serious: No
  Sender: FDA-Public Use
  Company Number: US-SA-2017SA126673

PATIENT
  Sex: Male

DRUGS (1)
  1. ALLEGRA ALLERGY [Suspect]
     Active Substance: FEXOFENADINE HYDROCHLORIDE
     Dosage: 2 ALLEGRA ALLERGY 24 HOUR GELCAPS
     Route: 065
     Dates: start: 20170706

REACTIONS (3)
  - Product use issue [Unknown]
  - Hypersensitivity [Unknown]
  - Drug prescribing error [Unknown]
